FAERS Safety Report 8957416 (Version 3)
Quarter: 2013Q2

REPORT INFORMATION
  Report Type: Spontaneous
  Country: DK (occurrence: DE)
  Receive Date: 20121211
  Receipt Date: 20130403
  Transmission Date: 20140414
  Serious: Yes (Other)
  Sender: FDA-Public Use
  Company Number: DE-FRI-1000040974

PATIENT
  Age: 24 Year
  Sex: Female
  Weight: 65 kg

DRUGS (3)
  1. ESCITALOPRAM ORAL SOLUTION [Suspect]
     Indication: GENERALISED ANXIETY DISORDER
     Dosage: 20 MG
     Route: 048
     Dates: start: 20120820
  2. OLANZAPINE [Concomitant]
     Indication: GENERALISED ANXIETY DISORDER
     Dosage: 10 MG
     Route: 048
     Dates: start: 20120523
  3. LYRICA [Concomitant]
     Indication: GENERALISED ANXIETY DISORDER
     Dosage: 150 MG
     Route: 048
     Dates: start: 20120523

REACTIONS (1)
  - Grand mal convulsion [Recovered/Resolved]
